FAERS Safety Report 11615071 (Version 3)
Quarter: 2015Q4

REPORT INFORMATION
  Report Type: Spontaneous
  Country: IT (occurrence: IT)
  Receive Date: 20151009
  Receipt Date: 20151030
  Transmission Date: 20160304
  Serious: Yes (Death, Other)
  Sender: FDA-Public Use
  Company Number: IT-SUN PHARMACEUTICAL INDUSTRIES LTD-2015RR-104212

PATIENT

DRUGS (1)
  1. AMOXICILLIN. [Suspect]
     Active Substance: AMOXICILLIN
     Indication: UPPER RESPIRATORY TRACT INFECTION
     Dosage: 1 G, BID
     Route: 048

REACTIONS (3)
  - Intestinal infarction [Fatal]
  - Multi-organ failure [Fatal]
  - Toxic epidermal necrolysis [Fatal]
